FAERS Safety Report 8530283-8 (Version None)
Quarter: 2012Q3

REPORT INFORMATION
  Report Type: 
  Country: None (occurrence: None)
  Receive Date: 20120723
  Receipt Date: 20120716
  Transmission Date: 20120928
  Serious: Yes (Other)
  Sender: FDA-Public Use
  Company Number: CO-JNJFOC-20120504324

PATIENT
  Age: 30 Year
  Sex: Female

DRUGS (3)
  1. MESALAMINE [Concomitant]
     Route: 048
  2. AZATHIOPRINE [Concomitant]
     Route: 048
  3. INFLIXIMAB, RECOMBINANT [Suspect]
     Indication: COLITIS ULCERATIVE
     Route: 042
     Dates: start: 20100205

REACTIONS (4)
  - CONTUSION [None]
  - RASH ERYTHEMATOUS [None]
  - MAMMOPLASTY [None]
  - POSTOPERATIVE WOUND INFECTION [None]
